FAERS Safety Report 5062888-3 (Version None)
Quarter: 2006Q3

REPORT INFORMATION
  Report Type: 
  Country: None (occurrence: None)
  Receive Date: 20060724
  Receipt Date: 20060712
  Transmission Date: 20061208
  Serious: Yes (Death)
  Sender: FDA-Public Use
  Company Number: 2006077839

PATIENT
  Age: 52 Year
  Sex: Male

DRUGS (8)
  1. VFEND [Suspect]
     Indication: FUNGAL INFECTION
     Dosage: SEE IMAGE
     Route: 042
     Dates: start: 20050803, end: 20050809
  2. VFEND [Suspect]
     Indication: FUNGAL INFECTION
     Dosage: SEE IMAGE
     Route: 042
     Dates: start: 20050810, end: 20050813
  3. VFEND [Suspect]
     Indication: FUNGAL INFECTION
     Dosage: SEE IMAGE
     Route: 042
     Dates: start: 20050814, end: 20050819
  4. MAXIPIME [Concomitant]
  5. PREDNISOLONE [Concomitant]
  6. CYTARABINE [Concomitant]
  7. VEPESID [Concomitant]
  8. TAZOCIN (PIPERACILLIN SODIUM, TAZOBACTAM SODIUM) [Concomitant]

REACTIONS (4)
  - BACTERIAL INFECTION [None]
  - CONDITION AGGRAVATED [None]
  - MYELODYSPLASTIC SYNDROME [None]
  - PHOTOPHOBIA [None]
